FAERS Safety Report 6986364-3 (Version None)
Quarter: 2010Q3

REPORT INFORMATION
  Report Type: 
  Country: None (occurrence: None)
  Receive Date: 20100915
  Receipt Date: 20090622
  Transmission Date: 20110219
  Serious: No
  Sender: FDA-Public Use
  Company Number: US-WYE-H09876909

PATIENT
  Age: 38 Year
  Sex: Female

DRUGS (3)
  1. PRISTIQ [Suspect]
     Indication: ANXIETY
     Route: 048
     Dates: start: 20090101
  2. PRISTIQ [Suspect]
     Indication: DEPRESSION
  3. MIRENA [Concomitant]

REACTIONS (1)
  - WEIGHT INCREASED [None]
